FAERS Safety Report 8716094 (Version 4)
Quarter: 2012Q4

REPORT INFORMATION
  Report Type: Report from Study
  Country: DE (occurrence: DE)
  Receive Date: 20120809
  Receipt Date: 20121018
  Transmission Date: 20130627
  Serious: Yes (Hospitalization)
  Sender: FDA-Public Use
  Company Number: DE-ROCHE-1093828

PATIENT
  Age: 66 Year
  Sex: Female
  Weight: 56 kg

DRUGS (44)
  1. BEVACIZUMAB [Suspect]
     Indication: NON-SMALL CELL LUNG CANCER RECURRENT
     Dosage: Most recent dose prior to SAE: 11/Jul/2012. Dose of last bevacizumab taken 780 mg
     Route: 042
     Dates: start: 20120326
  2. PACLITAXEL [Suspect]
     Indication: NON-SMALL CELL LUNG CANCER RECURRENT
     Dosage: Most recent dose prior to SAE: 11/Jul/2012.Last dose taken 308 mg
     Route: 042
     Dates: start: 20120326
  3. CARBOPLATIN [Suspect]
     Indication: NON-SMALL CELL LUNG CANCER RECURRENT
     Dosage: Most recent dose prior to SAE: 11/Jul/2012.Dose last taken 410 mg
     Route: 042
     Dates: start: 20120326
  4. PAROXETINE [Concomitant]
     Indication: DEPRESSION
     Route: 048
  5. EUTHYROX [Concomitant]
     Indication: HYPERTHYROIDISM
     Route: 048
  6. CONCOR [Concomitant]
     Indication: HYPERTENSION
     Route: 048
  7. DELIX [Concomitant]
     Indication: HYPERTENSION
     Route: 048
     Dates: end: 20120702
  8. PANTOZOL [Concomitant]
     Indication: GASTROOESOPHAGEAL REFLUX DISEASE
     Route: 048
  9. FORTECORTIN [Concomitant]
     Indication: NAUSEA
     Route: 048
     Dates: start: 20120316, end: 20120723
  10. FORTECORTIN [Concomitant]
     Route: 048
     Dates: start: 20120325, end: 20120801
  11. OPTIPECT [Concomitant]
     Indication: COUGH
     Dosage: 20 drops
     Route: 048
     Dates: start: 20120316, end: 20120702
  12. OPTIPECT [Concomitant]
     Dosage: dose: 20 drops
     Route: 048
     Dates: start: 20120730, end: 20120802
  13. OPTIPECT [Concomitant]
     Dosage: dose: 20 drops
     Route: 048
     Dates: start: 20120716, end: 20120718
  14. OXAZEPAM [Concomitant]
     Indication: DEPRESSION
     Route: 048
  15. TAVOR (GERMANY) [Concomitant]
     Indication: DEPRESSION
     Route: 048
     Dates: end: 20120702
  16. NOVALGIN [Concomitant]
     Indication: ABDOMINAL PAIN
     Dosage: 20 drops
     Route: 048
     Dates: start: 20120328, end: 20120702
  17. OXYGEN [Concomitant]
     Indication: DYSPNOEA
     Dosage: route: inhaled
     Route: 065
     Dates: start: 20120316
  18. TAVEGIL [Concomitant]
     Indication: PREMEDICATION
     Dosage: 1 ampule
     Route: 042
     Dates: start: 20120326, end: 20120801
  19. RANITIDIN [Concomitant]
     Indication: PREMEDICATION
     Dosage: 1 ampule
     Route: 042
     Dates: start: 20120326, end: 20120801
  20. ZOFRAN [Concomitant]
     Indication: PREMEDICATION
     Route: 048
     Dates: start: 20120326, end: 20120802
  21. PERENTEROL FORTE [Concomitant]
     Indication: DIARRHOEA
     Route: 048
     Dates: start: 20120604, end: 20120702
  22. KALIUM [Concomitant]
     Indication: HYPOKALAEMIA
     Route: 048
     Dates: start: 20120703, end: 20120715
  23. KALIUM [Concomitant]
     Route: 048
     Dates: start: 20120716, end: 20120723
  24. SPIRONOLACTON [Concomitant]
     Indication: PERICARDIAL EFFUSION
     Route: 048
     Dates: start: 20120530, end: 20120702
  25. SPIRONOLACTON [Concomitant]
     Indication: PULMONARY OEDEMA
     Route: 048
     Dates: start: 20120724
  26. XIMOVAN [Concomitant]
     Indication: PROPHYLAXIS
     Route: 048
     Dates: start: 20120710, end: 20120711
  27. XIMOVAN [Concomitant]
     Route: 048
     Dates: start: 20120730, end: 20120802
  28. MCP [Concomitant]
     Indication: NAUSEA
     Dosage: 20 drops
     Route: 048
     Dates: start: 20120716, end: 20120716
  29. TOREM [Concomitant]
     Indication: HYPERTENSION
     Route: 048
     Dates: start: 20120530, end: 20120703
  30. TOREM [Concomitant]
     Route: 048
     Dates: start: 20120704, end: 20120718
  31. TOREM [Concomitant]
     Route: 048
     Dates: start: 20120719, end: 20120723
  32. LASIX [Concomitant]
     Indication: PERICARDIAL EFFUSION
     Route: 042
     Dates: start: 20120716, end: 20120716
  33. LASIX [Concomitant]
     Indication: PULMONARY OEDEMA
     Route: 042
     Dates: start: 20120717, end: 20120717
  34. LASIX [Concomitant]
     Route: 042
     Dates: start: 20120731, end: 20120731
  35. RINGER SOLUTION [Concomitant]
     Route: 042
     Dates: start: 20120717, end: 20120717
  36. KCL [Concomitant]
     Indication: HYPOKALAEMIA
     Route: 042
     Dates: start: 20120717, end: 20120717
  37. NACL 0.9 IV SOLUTION [Concomitant]
     Route: 042
     Dates: start: 20120728, end: 20120801
  38. NACL 0.9 IV SOLUTION [Concomitant]
     Route: 042
     Dates: start: 20120730, end: 20120730
  39. CERNEVIT [Concomitant]
     Dosage: dose: 1 ampule
     Route: 042
     Dates: start: 20120728, end: 20120731
  40. AMBROXOL [Concomitant]
     Dosage: dose: 30 drops
     Route: 048
     Dates: start: 20120731, end: 20120803
  41. SULTANOL [Concomitant]
     Dosage: dose: 1 ampule
     Route: 055
     Dates: start: 20120816, end: 20120816
  42. ATROVENT [Concomitant]
     Dosage: dose: 1 ampule
     Route: 055
     Dates: start: 20120816, end: 20120816
  43. BEPANTHEN [Concomitant]
     Route: 060
     Dates: start: 20120816, end: 20120816
  44. PLACEBO [Suspect]
     Indication: NON-SMALL CELL LUNG CANCER RECURRENT
     Route: 065

REACTIONS (3)
  - Oedema due to cardiac disease [Not Recovered/Not Resolved]
  - Hypertensive crisis [Recovered/Resolved]
  - Mitral valve incompetence [Not Recovered/Not Resolved]
